FAERS Safety Report 18548891 (Version 1)
Quarter: 2020Q4

REPORT INFORMATION
  Report Type: Spontaneous
  Country: CN (occurrence: CN)
  Receive Date: 20201125
  Receipt Date: 20201125
  Transmission Date: 20210114
  Serious: Yes (Life-Threatening)
  Sender: FDA-Public Use
  Company Number: CN-BAXTER-2020BAX023804

PATIENT
  Age: 58 Year
  Sex: Female
  Weight: 54 kg

DRUGS (8)
  1. ENDOXAN [Suspect]
     Active Substance: CYCLOPHOSPHAMIDE
     Indication: LYMPHOMA
     Dosage: CYCLOPHOSPHAMIDE FOR INJECTION 0.4G + TO 0.9% SODIUM CHLORIDE INJECTION 250 ML
     Route: 041
     Dates: start: 20201021, end: 20201021
  2. SODIUM CHLORIDE. [Suspect]
     Active Substance: SODIUM CHLORIDE
     Indication: MEDICATION DILUTION
     Dosage: VINCRISTINE 1 MG + 0.9% SODIUM CHLORIDE INJECTION 250 ML
     Route: 041
     Dates: start: 20201021, end: 20201021
  3. SODIUM CHLORIDE. [Suspect]
     Active Substance: SODIUM CHLORIDE
     Dosage: CYCLOPHOSPHAMIDE FOR INJECTION 0.4 + 0.9% SODIUM CHLORIDE INJECTION 250 ML FOR 4 HOURS.
     Route: 041
     Dates: start: 20201021, end: 20201021
  4. 5% GLUCOSE  INJECTION [Suspect]
     Active Substance: DEXTROSE
     Indication: MEDICATION DILUTION
     Dosage: EPIRUBICIN FOR INJECTION 40 MG + 5% GLUCOSE INJECTION 250 MG FOR 4 HOURS.
     Route: 041
     Dates: start: 20201021, end: 20201021
  5. VINCRISTINE SULFATE. [Suspect]
     Active Substance: VINCRISTINE SULFATE
     Indication: LYMPHOMA
     Dosage: VINCRISTINE 1 MG + 0.9% SODIUM CHLORIDE INJECTION 250 ML FOR 4 HOURS.
     Route: 041
     Dates: start: 20201021, end: 20201021
  6. SODIUM CHLORIDE. [Suspect]
     Active Substance: SODIUM CHLORIDE
     Dosage: RITUXIMAB INJECTION 400 MG + 0.9% SODIUM CHLORIDE INJECTION 500 ML FOR 4 HOURS.
     Route: 041
     Dates: start: 20201021, end: 20201021
  7. EPIRUBICIN HYDROCHLORIDE. [Suspect]
     Active Substance: EPIRUBICIN HYDROCHLORIDE
     Indication: LYMPHOMA
     Dosage: EPIRUBICIN FOR INJECTION 40 MG + 5% GLUCOSE INJECTION 250 ML FOR 4 HOURS.
     Route: 041
     Dates: start: 20201021, end: 20201021
  8. RITUXIMAB. [Suspect]
     Active Substance: RITUXIMAB
     Indication: LYMPHOMA
     Dosage: RITUXIMAB INJECTION 400 MG + 0.9% SODIUM CHLORIDE INJECTION 500 ML.
     Route: 041
     Dates: start: 20201021, end: 20201021

REACTIONS (1)
  - Myelosuppression [Recovering/Resolving]

NARRATIVE: CASE EVENT DATE: 20201027
